FAERS Safety Report 6434054-8 (Version None)
Quarter: 2009Q4

REPORT INFORMATION
  Report Type: 
  Country: None (occurrence: None)
  Receive Date: 20091109
  Receipt Date: 20091109
  Transmission Date: 20100525
  Serious: Yes (Life-Threatening, Disabling, Other)
  Sender: FDA-Public Use
  Company Number: None

PATIENT
  Age: 37 Year
  Sex: Female
  Weight: 68.0396 kg

DRUGS (1)
  1. VIVELLE-DOT [Suspect]
     Indication: HYSTERECTOMY
     Dosage: ONE PATCH TO SKIN TWICE WEEK 30 DAYS 0.1MG DAY

REACTIONS (16)
  - ABDOMINAL PAIN UPPER [None]
  - ALOPECIA [None]
  - BACK PAIN [None]
  - CHEST PAIN [None]
  - CONFUSIONAL STATE [None]
  - DYSURIA [None]
  - FURUNCLE [None]
  - HEADACHE [None]
  - OEDEMA PERIPHERAL [None]
  - PRODUCT ADHESION ISSUE [None]
  - PROTEIN URINE PRESENT [None]
  - RENAL DISORDER [None]
  - SCAR [None]
  - SWELLING [None]
  - SWELLING FACE [None]
  - VISUAL IMPAIRMENT [None]
